FAERS Safety Report 9033128 (Version 1)
Quarter: 2013Q1

REPORT INFORMATION
  Report Type: Spontaneous
  Country: US (occurrence: US)
  Receive Date: 20130128
  Receipt Date: 20130128
  Transmission Date: 20140127
  Serious: No
  Sender: FDA-Public Use
  Company Number: US-MYLANLABS-2012S1007857

PATIENT
  Sex: Female

DRUGS (1)
  1. EXTENDED PHENYTOIN SODIUM CAPSULES, USP [Suspect]

REACTIONS (1)
  - Malaise [Not Recovered/Not Resolved]
